FAERS Safety Report 7221159-7 (Version None)
Quarter: 2011Q1

REPORT INFORMATION
  Report Type: 
  Country: None (occurrence: None)
  Receive Date: 20110112
  Receipt Date: 20101108
  Transmission Date: 20110831
  Serious: No
  Sender: FDA-Public Use
  Company Number: US-PFIZER INC-US-WYE-H18041910

PATIENT
  Sex: Female
  Weight: 59 kg

DRUGS (3)
  1. PREMPRO [Suspect]
     Indication: MENOPAUSAL SYMPTOMS
     Dosage: 0.625MG/2.5MG DAILY
     Route: 048
     Dates: start: 20101003, end: 20101007
  2. PREMPRO [Suspect]
     Indication: IRRITABILITY
  3. PREMPRO [Suspect]
     Indication: HOT FLUSH

REACTIONS (4)
  - DRUG INEFFECTIVE [None]
  - NAUSEA [None]
  - INSOMNIA [None]
  - ANXIETY [None]
